FAERS Safety Report 5138938-2 (Version None)
Quarter: 2006Q4

REPORT INFORMATION
  Report Type: 
  Country: None (occurrence: None)
  Receive Date: 20061030
  Receipt Date: 20060518
  Transmission Date: 20070319
  Serious: No
  Sender: FDA-Public Use
  Company Number: US-GLAXOSMITHKLINE-A0606199A

PATIENT
  Age: 52 Year
  Sex: Female

DRUGS (7)
  1. ADVAIR HFA [Suspect]
     Indication: CHRONIC OBSTRUCTIVE PULMONARY DISEASE
     Dosage: 1PUFF TWICE PER DAY
     Route: 055
     Dates: start: 20010101, end: 20050101
  2. LORCET-HD [Concomitant]
  3. NEXIUM [Concomitant]
  4. ATARAX [Concomitant]
  5. VALIUM [Concomitant]
  6. PROZAC [Concomitant]
  7. OXYGEN [Concomitant]

REACTIONS (1)
  - CANDIDIASIS [None]
